FAERS Safety Report 8814223 (Version 1)
Quarter: 2012Q4

REPORT INFORMATION
  Report Type: 
  Country: US (occurrence: US)
  Receive Date: 20120928
  Receipt Date: 20120928
  Transmission Date: 20130627
  Serious: Yes (Hospitalization)
  Sender: FDA-Public Use
  Company Number: US-BAYER-2012-099034

PATIENT
  Age: 25 Year
  Sex: Female
  Weight: 157 kg

DRUGS (4)
  1. YAZ [Suspect]
  2. METFORMIN [Concomitant]
  3. VICODIN [Concomitant]
  4. ASA [Concomitant]

REACTIONS (2)
  - Pulmonary embolism [None]
  - Deep vein thrombosis [None]
